FAERS Safety Report 4978454-1 (Version None)
Quarter: 2006Q1

REPORT INFORMATION
  Report Type: 
  Country: None (occurrence: None)
  Receive Date: 20060227
  Receipt Date: 20050526
  Transmission Date: 20060701
  Serious: Yes (Other)
  Sender: FDA-Public Use
  Company Number: WAES 0505USA03228

PATIENT
  Sex: Male

DRUGS (2)
  1. ZOCOR [Suspect]
     Dosage: 80 MG DAILY PO
     Route: 048
     Dates: end: 20040101
  2. LOPID [Suspect]
     Dates: end: 20040101

REACTIONS (1)
  - RHABDOMYOLYSIS [None]
